FAERS Safety Report 10468199 (Version 2)
Quarter: 2014Q4

REPORT INFORMATION
  Report Type: Spontaneous
  Country: US (occurrence: US)
  Receive Date: 20140922
  Receipt Date: 20141028
  Transmission Date: 20150528
  Serious: No
  Sender: FDA-Public Use
  Company Number: US-PFIZER INC-2014261124

PATIENT
  Age: 74 Year
  Sex: Female
  Weight: 69.84 kg

DRUGS (2)
  1. LYRICA [Suspect]
     Active Substance: PREGABALIN
     Indication: AUTONOMIC NEUROPATHY
     Dosage: 50 MG, 4X/DAY
     Route: 048
     Dates: start: 2012
  2. LIDOCAINE. [Concomitant]
     Active Substance: LIDOCAINE
     Dosage: UNK, 4X/DAY

REACTIONS (6)
  - Weight increased [Unknown]
  - Glucose tolerance impaired [Unknown]
  - Pain [Unknown]
  - Blood pressure decreased [Unknown]
  - Therapeutic response unexpected [Unknown]
  - Blood cholesterol increased [Unknown]
